FAERS Safety Report 13152127 (Version 1)
Quarter: 2017Q1

REPORT INFORMATION
  Report Type: Spontaneous
  Country: NO (occurrence: NO)
  Receive Date: 20170125
  Receipt Date: 20170125
  Transmission Date: 20170428
  Serious: Yes (Other)
  Sender: FDA-Public Use
  Company Number: NO-SA-2017SA009439

PATIENT
  Age: 69 Year
  Sex: Male

DRUGS (2)
  1. EMCONCOR [Concomitant]
     Active Substance: BISOPROLOL FUMARATE
  2. MULTAQ [Suspect]
     Active Substance: DRONEDARONE
     Indication: ATRIAL FIBRILLATION
     Route: 048
     Dates: start: 201611

REACTIONS (2)
  - Rash pruritic [Not Recovered/Not Resolved]
  - Feeling cold [Not Recovered/Not Resolved]

NARRATIVE: CASE EVENT DATE: 201611
